FAERS Safety Report 12871527 (Version 4)
Quarter: 2016Q4

REPORT INFORMATION
  Report Type: Report from Study
  Country: US (occurrence: US)
  Receive Date: 20161020
  Receipt Date: 20161215
  Transmission Date: 20170207
  Serious: Yes (Hospitalization)
  Sender: FDA-Public Use
  Company Number: US-BIOGEN-2016BI00306291

PATIENT
  Age: 59 Year
  Sex: Female

DRUGS (2)
  1. AVONEX [Suspect]
     Active Substance: INTERFERON BETA-1A
     Indication: MULTIPLE SCLEROSIS
     Route: 030
     Dates: start: 20031114, end: 20140914
  2. AVONEX [Suspect]
     Active Substance: INTERFERON BETA-1A
     Route: 030
     Dates: start: 20150401

REACTIONS (9)
  - Postoperative wound infection [Recovered/Resolved]
  - Coital bleeding [Recovered/Resolved]
  - Wound dehiscence [Recovered/Resolved]
  - Dyspareunia [Recovered/Resolved]
  - Defaecation urgency [Recovered/Resolved]
  - Food poisoning [Unknown]
  - Incisional hernia [Recovered/Resolved]
  - Hysterectomy [Recovered/Resolved]
  - Gait disturbance [Not Recovered/Not Resolved]

NARRATIVE: CASE EVENT DATE: 20160325
